FAERS Safety Report 5676565-9 (Version None)
Quarter: 2008Q1

REPORT INFORMATION
  Report Type: 
  Country: None (occurrence: None)
  Receive Date: 20080321
  Receipt Date: 20080321
  Transmission Date: 20080703
  Serious: Yes (Life-Threatening, Hospitalization)
  Sender: FDA-Public Use
  Company Number: None

PATIENT
  Sex: Male
  Weight: 113.6 kg

DRUGS (11)
  1. ARIXTRA [Suspect]
     Dosage: 2.5 MG ONE DOSE SUBCUT.
     Route: 058
     Dates: start: 20080306
  2. PLAVIX [Concomitant]
  3. ASPIRIN [Concomitant]
  4. LOPRESSOR [Concomitant]
  5. ADVAIR DISKUS 100/50 [Concomitant]
  6. LASIX [Concomitant]
  7. DIOVAN [Concomitant]
  8. PROTONIX [Concomitant]
  9. ACTOS [Concomitant]
  10. INSULIN [Concomitant]
  11. NEXIUM [Concomitant]

REACTIONS (2)
  - POST PROCEDURAL COMPLICATION [None]
  - VENTRICULAR FIBRILLATION [None]
